FAERS Safety Report 9394797 (Version 1)
Quarter: 2013Q3

REPORT INFORMATION
  Report Type: Spontaneous
  Country: GB (occurrence: None)
  Receive Date: 20130705
  Receipt Date: 20130705
  Transmission Date: 20140515
  Serious: Yes (Hospitalization)
  Sender: FDA-Public Use
  Company Number: FK201302277

PATIENT
  Age: 43 Year
  Sex: Female

DRUGS (7)
  1. PROPRANOLOL HYDROCHLORIDE [Suspect]
     Indication: MIGRAINE
     Dosage: 1 IN 1 D
  2. EPINEPHRINE [Suspect]
     Indication: HYPOTENSION
     Dosage: 1ST DOSE
     Route: 030
  3. FLUCLOXACILLIN (FLUCLOXACILLIN) [Concomitant]
  4. LANSOPRAZOLE (LANSOPRAZOLE) [Concomitant]
  5. FEXOFENADINE [Concomitant]
  6. HYDROCORTISONE (HYDROCORTISONE) [Concomitant]
  7. CHLORPHENAMINE (CHLORPHENAMINE) [Concomitant]

REACTIONS (4)
  - Kounis syndrome [None]
  - Myocardial infarction [None]
  - Cellulitis [None]
  - Anaphylactic reaction [None]
